FAERS Safety Report 10581609 (Version 1)
Quarter: 2014Q4

REPORT INFORMATION
  Report Type: Spontaneous
  Country: JP (occurrence: JP)
  Receive Date: 20141113
  Receipt Date: 20141113
  Transmission Date: 20150529
  Serious: Yes (Other)
  Sender: FDA-Public Use
  Company Number: JP-TEVA-520741ISR

PATIENT
  Age: 76 Year
  Sex: Male

DRUGS (2)
  1. MELOXICAM. [Suspect]
     Active Substance: MELOXICAM
     Indication: OSTEOARTHROPATHY
     Dosage: 10 MILLIGRAM DAILY;
     Route: 065
  2. LOXOPROFEN [Suspect]
     Active Substance: LOXOPROFEN
     Indication: OSTEOARTHROPATHY
     Dosage: 180 MILLIGRAM DAILY;
     Route: 065

REACTIONS (1)
  - Intestinal diaphragm disease [Unknown]
